FAERS Safety Report 7183620-3 (Version None)
Quarter: 2010Q4

REPORT INFORMATION
  Report Type: 
  Country: None (occurrence: None)
  Receive Date: 20101222
  Receipt Date: 20101214
  Transmission Date: 20110411
  Serious: Yes (Other)
  Sender: FDA-Public Use
  Company Number: JP-JNJCH-2010028791

PATIENT
  Age: 80 Year
  Sex: Male

DRUGS (1)
  1. FRESH MINT LISTERINE [Suspect]
     Indication: DENTAL DISORDER PROPHYLAXIS
     Dosage: TEXT:ONCE PER DAY
     Route: 048
     Dates: start: 20100901, end: 20100901

REACTIONS (6)
  - GLOSSITIS [None]
  - GLOSSODYNIA [None]
  - LARYNGEAL HAEMORRHAGE [None]
  - PHARYNGEAL OEDEMA [None]
  - TONGUE ERUPTION [None]
  - TOOTH DISORDER [None]
